FAERS Safety Report 5027909-2 (Version None)
Quarter: 2006Q2

REPORT INFORMATION
  Report Type: 
  Country: None (occurrence: None)
  Receive Date: 20060616
  Receipt Date: 20060607
  Transmission Date: 20061013
  Serious: Yes (Other)
  Sender: FDA-Public Use
  Company Number: US-AMGEN-US182097

PATIENT
  Sex: Female

DRUGS (4)
  1. ARANESP [Suspect]
     Indication: RENAL TRANSPLANT
  2. IMMUNOGLOBULINS [Concomitant]
     Route: 042
  3. PREDNISONE [Concomitant]
  4. DANAZOL [Concomitant]

REACTIONS (1)
  - APLASIA PURE RED CELL [None]
